FAERS Safety Report 11744126 (Version 1)
Quarter: 2015Q4

REPORT INFORMATION
  Report Type: Other
  Country: GB (occurrence: GB)
  Receive Date: 20151116
  Receipt Date: 20151116
  Transmission Date: 20160304
  Serious: Yes (Other)
  Sender: FDA-Public Use
  Company Number: GB-DEP_13021_2015

PATIENT
  Age: 38 Year
  Sex: Female
  Weight: 90.7 kg

DRUGS (4)
  1. NAPROXEN (NAPROXEN) [Concomitant]
     Active Substance: NAPROXEN
     Dosage: DF
  2. LEMSIP MAX ALL IN ONE [Concomitant]
     Dosage: DF
  3. TAPENTADOL (TAPENTADOL) [Suspect]
     Active Substance: TAPENTADOL
     Indication: BACK PAIN
     Dosage: UNK
     Route: 048
     Dates: start: 20151017
  4. AMITRIPTYLINE (AMITRIPTYLINE) [Concomitant]
     Active Substance: AMITRIPTYLINE
     Dosage: DF

REACTIONS (7)
  - Disturbance in attention [Recovered/Resolved]
  - Cluster headache [Recovered/Resolved]
  - Depressed level of consciousness [Recovered/Resolved]
  - Speech disorder [Recovered/Resolved]
  - Paraesthesia [Recovered/Resolved]
  - Chest pain [Recovered/Resolved]
  - Hallucination, auditory [Recovered/Resolved]

NARRATIVE: CASE EVENT DATE: 20151021
